FAERS Safety Report 8160280-6 (Version None)
Quarter: 2012Q1

REPORT INFORMATION
  Report Type: 
  Country: None (occurrence: None)
  Receive Date: 20120223
  Receipt Date: 20120223
  Transmission Date: 20120608
  Serious: Yes (Life-Threatening)
  Sender: FDA-Public Use
  Company Number: None

PATIENT
  Age: 25 Year
  Sex: Female
  Weight: 61.234 kg

DRUGS (2)
  1. KARIVA -GENERIC FOR MIRCETTE- [Suspect]
     Indication: CONTRACEPTION
     Dosage: 0.15 MG/0.02 MG AND 0.01 MG
     Route: 048
     Dates: start: 20061201, end: 20111007
  2. KARIVA -GENERIC FOR MIRCETTE- [Suspect]
     Indication: MENORRHAGIA
     Dosage: 0.15 MG/0.02 MG AND 0.01 MG
     Route: 048
     Dates: start: 20061201, end: 20111007

REACTIONS (2)
  - THROMBOSIS [None]
  - DEEP VEIN THROMBOSIS [None]
